FAERS Safety Report 10511068 (Version 10)
Quarter: 2019Q2

REPORT INFORMATION
  Report Type: Spontaneous
  Country: JP (occurrence: JP)
  Receive Date: 20141010
  Receipt Date: 20190405
  Transmission Date: 20190711
  Serious: Yes (Life-Threatening, Hospitalization, Other)
  Sender: FDA-Public Use
  Company Number: JP-GLAXOSMITHKLINE-B1035061A

PATIENT
  Age: 65 Year
  Sex: Male

DRUGS (4)
  1. TIVICAY [Suspect]
     Active Substance: DOLUTEGRAVIR SODIUM
     Indication: HIV INFECTION
     Dosage: 50 MG, QD
     Route: 048
     Dates: start: 201501
  2. EDURANT [Concomitant]
     Active Substance: RILPIVIRINE HYDROCHLORIDE
     Indication: HIV INFECTION
     Dosage: 25 MG, QD
     Dates: start: 201501
  3. ABACAVIR SULFATE + LAMIVUDINE [Suspect]
     Active Substance: ABACAVIR SULFATE\LAMIVUDINE
     Indication: HIV INFECTION
     Dosage: 1 DF, QD
     Route: 048
     Dates: start: 201212, end: 201501
  4. ISENTRESS [Concomitant]
     Active Substance: RALTEGRAVIR POTASSIUM
     Indication: HIV INFECTION
     Dosage: 400 MG, BID
     Route: 048
     Dates: start: 20100310, end: 201501

REACTIONS (25)
  - Muscle rigidity [Unknown]
  - Autonomic nervous system imbalance [Unknown]
  - Loss of personal independence in daily activities [Unknown]
  - Choking [Unknown]
  - HIV-associated neurocognitive disorder [Unknown]
  - Postural reflex impairment [Unknown]
  - Memory impairment [Unknown]
  - Mental impairment [Unknown]
  - Nystagmus [Unknown]
  - Cerebellar atrophy [Unknown]
  - Pneumonia aspiration [Recovered/Resolved]
  - Dysuria [Unknown]
  - Ataxia [Unknown]
  - Cerebellar ataxia [Unknown]
  - Dysphagia [Not Recovered/Not Resolved]
  - Cerebral hypoperfusion [Unknown]
  - Asterixis [Unknown]
  - Orthostatic hypotension [Unknown]
  - Multiple system atrophy [Not Recovered/Not Resolved]
  - Hypotonic urinary bladder [Unknown]
  - Anorectal disorder [Unknown]
  - Sleep apnoea syndrome [Unknown]
  - Gait disturbance [Not Recovered/Not Resolved]
  - Gait disturbance [Unknown]
  - Dysstasia [Not Recovered/Not Resolved]

NARRATIVE: CASE EVENT DATE: 20140829
